FAERS Safety Report 18590043 (Version 1)
Quarter: 2020Q4

REPORT INFORMATION
  Report Type: Spontaneous
  Country: US (occurrence: US)
  Receive Date: 20201207
  Receipt Date: 20201207
  Transmission Date: 20210114
  Serious: Yes (Other)
  Sender: FDA-Public Use
  Company Number: None

PATIENT
  Age: 79 Year
  Sex: Male

DRUGS (1)
  1. SUTENT [Suspect]
     Active Substance: SUNITINIB MALATE
     Route: 048
     Dates: start: 20200515, end: 20201123

REACTIONS (3)
  - Therapy interrupted [None]
  - Palmar-plantar erythrodysaesthesia syndrome [None]
  - Rash [None]

NARRATIVE: CASE EVENT DATE: 20201123
